FAERS Safety Report 13600863 (Version 1)
Quarter: 2017Q2

REPORT INFORMATION
  Report Type: Spontaneous
  Country: US (occurrence: US)
  Receive Date: 20170531
  Receipt Date: 20170531
  Transmission Date: 20170830
  Serious: Yes (Other)
  Sender: FDA-Public Use
  Company Number: None

PATIENT
  Age: 79 Year
  Sex: Female

DRUGS (7)
  1. LENALIDOMIDE [Concomitant]
     Active Substance: LENALIDOMIDE
  2. LOSARTAN. [Concomitant]
     Active Substance: LOSARTAN
  3. ACYCLOVIR. [Concomitant]
     Active Substance: ACYCLOVIR
  4. SIMVASTATIN. [Concomitant]
     Active Substance: SIMVASTATIN
  5. REVLIMID [Suspect]
     Active Substance: LENALIDOMIDE
     Indication: PLASMA CELL MYELOMA
     Dosage: FREQUENCY - DAILY X 21D/28D
     Route: 048
     Dates: start: 20170313
  6. FAMOTIDINE. [Concomitant]
     Active Substance: FAMOTIDINE
  7. TROSPIUM [Concomitant]
     Active Substance: TROSPIUM

REACTIONS (1)
  - Deep vein thrombosis [None]

NARRATIVE: CASE EVENT DATE: 20170516
